FAERS Safety Report 9841386 (Version 2)
Quarter: 2014Q1

REPORT INFORMATION
  Report Type: Spontaneous
  Country: US (occurrence: US)
  Receive Date: 20140124
  Receipt Date: 20140207
  Transmission Date: 20141002
  Serious: No
  Sender: FDA-Public Use
  Company Number: US-009507513-1401USA010738

PATIENT
  Age: 83 Year
  Sex: Female
  Weight: 78.91 kg

DRUGS (1)
  1. OXYTROL FOR WOMEN [Suspect]
     Indication: URINARY INCONTINENCE
     Dosage: UNK, UNKNOWN
     Route: 062
     Dates: start: 20140101

REACTIONS (3)
  - Lip swelling [Unknown]
  - Rash [Unknown]
  - Drug effect decreased [Unknown]
